FAERS Safety Report 9212575 (Version 3)
Quarter: 2013Q3

REPORT INFORMATION
  Report Type: Report from Study
  Country: FR (occurrence: FR)
  Receive Date: 20130405
  Receipt Date: 20130910
  Transmission Date: 20140515
  Serious: Yes (Other)
  Sender: FDA-Public Use
  Company Number: FR-BIOGENIDEC-2012BI060721

PATIENT
  Age: 47 Year
  Sex: Female
  Weight: 99 kg

DRUGS (2)
  1. BG00012 [Suspect]
     Indication: MULTIPLE SCLEROSIS
     Dates: start: 20100525
  2. FLECTOR [Concomitant]
     Indication: ARTHRALGIA
     Route: 061
     Dates: start: 20120901

REACTIONS (1)
  - Retinal ischaemia [Recovered/Resolved]
